FAERS Safety Report 9373863 (Version 2)
Quarter: 2013Q4

REPORT INFORMATION
  Report Type: Spontaneous
  Country: JP (occurrence: JP)
  Receive Date: 20130628
  Receipt Date: 20131002
  Transmission Date: 20140711
  Serious: Yes (Death)
  Sender: FDA-Public Use
  Company Number: JP-ROCHE-1242615

PATIENT
  Age: 60 Year
  Sex: Male
  Weight: 65 kg

DRUGS (7)
  1. ACTEMRA [Suspect]
     Indication: SECONDARY AMYLOIDOSIS
     Dosage: DOSAGE IS UNCERTAIN.
     Route: 041
     Dates: start: 20120406, end: 20130427
  2. ACTEMRA [Suspect]
     Indication: OFF LABEL USE
  3. IMURAN [Suspect]
     Indication: SECONDARY AMYLOIDOSIS
     Route: 048
     Dates: start: 20110709, end: 20130427
  4. REMICADE [Suspect]
     Indication: SECONDARY AMYLOIDOSIS
     Route: 065
     Dates: start: 20120119, end: 20120227
  5. ENBREL [Suspect]
     Indication: SECONDARY AMYLOIDOSIS
     Route: 065
     Dates: start: 201108, end: 20120114
  6. TAKEPRON [Concomitant]
     Indication: DIABETES MELLITUS
     Route: 048
     Dates: start: 20110709, end: 20130427
  7. BONALON [Concomitant]
     Indication: DIABETES MELLITUS
     Route: 048
     Dates: start: 20110709, end: 20130427

REACTIONS (2)
  - Brain neoplasm [Fatal]
  - Off label use [Unknown]
